FAERS Safety Report 19890125 (Version 1)
Quarter: 2021Q3

REPORT INFORMATION
  Report Type: Spontaneous
  Country: US (occurrence: US)
  Receive Date: 20210927
  Receipt Date: 20210927
  Transmission Date: 20211014
  Serious: No
  Sender: FDA-Public Use
  Company Number: US-ASTRAZENECA-2021A735859

PATIENT
  Sex: Female
  Weight: 83.9 kg

DRUGS (1)
  1. FASLODEX [Suspect]
     Active Substance: FULVESTRANT
     Indication: BREAST CANCER
     Dosage: 250 MG MONTHLY
     Route: 030
     Dates: start: 201712, end: 202105

REACTIONS (2)
  - Injection site infection [Recovered/Resolved with Sequelae]
  - Scar [Unknown]
